FAERS Safety Report 9402965 (Version 1)
Quarter: 2013Q3

REPORT INFORMATION
  Report Type: Spontaneous
  Country: US (occurrence: None)
  Receive Date: 20130715
  Receipt Date: 20130715
  Transmission Date: 20140515
  Serious: Yes (Other)
  Sender: FDA-Public Use
  Company Number: None

PATIENT
  Age: 35 None
  Sex: Female
  Weight: 60 kg

DRUGS (2)
  1. DAPSONE [Suspect]
     Indication: ANTIFUNGAL PROPHYLAXIS
     Route: 048
     Dates: start: 20130530, end: 20130603
  2. DAPSONE [Suspect]
     Indication: TOXOPLASMOSIS PROPHYLAXIS
     Route: 048
     Dates: start: 20130530, end: 20130603

REACTIONS (2)
  - Blood methaemoglobin present [None]
  - Hypoxia [None]
